FAERS Safety Report 11252374 (Version 1)
Quarter: 2015Q3

REPORT INFORMATION
  Report Type: Spontaneous
  Country: US (occurrence: US)
  Receive Date: 20150708
  Receipt Date: 20150708
  Transmission Date: 20151125
  Serious: No
  Sender: FDA-Public Use
  Company Number: US-ELI_LILLY_AND_COMPANY-US201402000760

PATIENT
  Sex: Female

DRUGS (9)
  1. VITAMIN B12 [Concomitant]
     Active Substance: CYANOCOBALAMIN
  2. ALIMTA [Suspect]
     Active Substance: PEMETREXED DISODIUM
     Indication: ADENOCARCINOMA
     Dosage: UNK, EVERY 21 DAYS
     Route: 065
  3. VITAMIN D                          /00107901/ [Concomitant]
     Active Substance: ERGOCALCIFEROL
  4. COENZYME Q10 [Concomitant]
     Active Substance: UBIDECARENONE
  5. FOLIC ACID. [Concomitant]
     Active Substance: FOLIC ACID
  6. VITAMIN C [Concomitant]
     Active Substance: ASCORBIC ACID
  7. DHA [Concomitant]
     Active Substance: DIETARY SUPPLEMENT
  8. ALIMTA [Suspect]
     Active Substance: PEMETREXED DISODIUM
     Indication: METASTASES TO LUNG
  9. ALIMTA [Suspect]
     Active Substance: PEMETREXED DISODIUM
     Indication: METASTASES TO CENTRAL NERVOUS SYSTEM

REACTIONS (9)
  - Muscular weakness [Unknown]
  - Pain in extremity [Unknown]
  - Hypoaesthesia [Unknown]
  - Nausea [Unknown]
  - Lacrimation increased [Unknown]
  - Back pain [Unknown]
  - Exostosis [Unknown]
  - Fatigue [Unknown]
  - Nerve compression [Unknown]
